FAERS Safety Report 15538222 (Version 2)
Quarter: 2018Q4

REPORT INFORMATION
  Report Type: Spontaneous
  Country: RS (occurrence: RS)
  Receive Date: 20181022
  Receipt Date: 20181109
  Transmission Date: 20190205
  Serious: Yes (Death, Hospitalization)
  Sender: FDA-Public Use
  Company Number: RS-B.I. PHARMACEUTICALS,INC./RIDGEFIELD-2018-BI-045928

PATIENT
  Age: 80 Year
  Sex: Male
  Weight: 90 kg

DRUGS (1)
  1. PRAXBIND [Suspect]
     Active Substance: IDARUCIZUMAB
     Indication: PROCOAGULANT THERAPY
     Route: 065
     Dates: start: 20180914, end: 20180914

REACTIONS (2)
  - Nosocomial infection [Fatal]
  - Expired product administered [Unknown]

NARRATIVE: CASE EVENT DATE: 20180914
